FAERS Safety Report 6177931-8 (Version None)
Quarter: 2009Q2

REPORT INFORMATION
  Report Type: 
  Country: None (occurrence: None)
  Receive Date: 20090504
  Receipt Date: 20090422
  Transmission Date: 20091009
  Serious: Yes (Disabling)
  Sender: FDA-Public Use
  Company Number: US-MERCK-0704USA00283

PATIENT
  Age: 57 Year
  Sex: Female

DRUGS (5)
  1. FOSAMAX [Suspect]
     Indication: OSTEOPOROSIS
     Route: 048
     Dates: start: 19950101, end: 20040101
  2. PREMPRO [Concomitant]
     Route: 065
  3. PLENDIL [Concomitant]
     Route: 048
  4. LESCOL [Concomitant]
     Route: 065
  5. CITRICAL [Concomitant]
     Route: 065

REACTIONS (5)
  - ANXIETY [None]
  - ONYCHOMYCOSIS [None]
  - RESORPTION BONE INCREASED [None]
  - SENSITIVITY OF TEETH [None]
  - TOOTH DISORDER [None]
